FAERS Safety Report 20905560 (Version 4)
Quarter: 2022Q4

REPORT INFORMATION
  Report Type: Spontaneous
  Country: US (occurrence: US)
  Receive Date: 20220602
  Receipt Date: 20221004
  Transmission Date: 20230113
  Serious: No
  Sender: FDA-Public Use
  Company Number: US-PFIZER INC-202200787101

PATIENT
  Age: 65 Year
  Sex: Male

DRUGS (1)
  1. XELJANZ [Suspect]
     Active Substance: TOFACITINIB CITRATE
     Dosage: 5 MG, 1X/DAY

REACTIONS (9)
  - Tinnitus [Recovering/Resolving]
  - Abdominal discomfort [Unknown]
  - Ear congestion [Unknown]
  - Headache [Unknown]
  - Arthralgia [Unknown]
  - Pollakiuria [Unknown]
  - Benign prostatic hyperplasia [Unknown]
  - Rash [Unknown]
  - Off label use [Unknown]
